FAERS Safety Report 8455413-8 (Version None)
Quarter: 2012Q2

REPORT INFORMATION
  Report Type: 
  Country: None (occurrence: None)
  Receive Date: 20120613
  Receipt Date: 20120604
  Transmission Date: 20120825
  Serious: Yes (Hospitalization)
  Sender: FDA-Public Use
  Company Number: 2012SP029461

PATIENT
  Age: 70 Year
  Sex: Female
  Weight: 42.1 kg

DRUGS (17)
  1. RIBAVIRIN [Suspect]
     Indication: HEPATITIS C
     Dates: start: 20111207, end: 20120521
  2. FAMOTIDINE [Concomitant]
  3. RINDERON V [Concomitant]
  4. HIRUDOID [Concomitant]
  5. KETOPROFEN [Concomitant]
  6. GASMOTIN [Concomitant]
  7. PEGINTERFERON ALFA-2B [Suspect]
     Indication: HEPATITIS C
     Dosage: 80 MCG/KG;QW
     Dates: start: 20111207, end: 20120515
  8. ALLEGRA [Concomitant]
  9. SODIUM HYALURONATE [Concomitant]
  10. PRIMPERAN TAB [Concomitant]
  11. LOXOPROFEN [Concomitant]
  12. CELEBREX [Concomitant]
  13. FORTEO [Concomitant]
  14. SELBEX [Concomitant]
  15. MK-7009 (INVESTIGATIONAL DRUG) [Suspect]
     Indication: HEPATITIS C
     Dosage: 300 MG;BID
     Dates: start: 20111207, end: 20120521
  16. TALION [Concomitant]
  17. NEGMIN [Concomitant]

REACTIONS (5)
  - CHONDROCALCINOSIS PYROPHOSPHATE [None]
  - MUSCULOSKELETAL PAIN [None]
  - LYMPHOCYTIC INFILTRATION [None]
  - ARTHRALGIA [None]
  - ARTHRITIS [None]
